FAERS Safety Report 9708703 (Version 2)
Quarter: 2014Q1

REPORT INFORMATION
  Report Type: Spontaneous
  Country: US (occurrence: US)
  Receive Date: 20131125
  Receipt Date: 20140108
  Transmission Date: 20141002
  Serious: Yes (Life-Threatening, Hospitalization, Disabling, Other)
  Sender: FDA-Public Use
  Company Number: US-GLAXOSMITHKLINE-A1050246A

PATIENT
  Age: 78 Year
  Sex: Female

DRUGS (2)
  1. VOTRIENT [Suspect]
     Indication: RENAL CELL CARCINOMA
     Dosage: 800MG PER DAY
     Route: 048
     Dates: start: 20121121
  2. CHEMOTHERAPY [Concomitant]

REACTIONS (4)
  - Cerebrovascular accident [Unknown]
  - Brain neoplasm malignant [Unknown]
  - Chemotherapy [Unknown]
  - Disease progression [Unknown]
